FAERS Safety Report 5691472-3 (Version None)
Quarter: 2008Q1

REPORT INFORMATION
  Report Type: 
  Country: None (occurrence: None)
  Receive Date: 20080331
  Receipt Date: 20080320
  Transmission Date: 20080703
  Serious: Yes (Other)
  Sender: FDA-Public Use
  Company Number: 2008AP000669

PATIENT
  Age: 68 Year
  Sex: Male

DRUGS (9)
  1. LISINOPRIL [Suspect]
     Dosage: 30 MG; QD; PO
     Route: 048
  2. IRBESARTAN [Suspect]
     Dosage: 75 MG; QD; PO
     Route: 048
  3. AMLODIPINE BESYLATE [Concomitant]
  4. CYANOCOBALAMIN [Concomitant]
  5. FOLIC ACID [Concomitant]
  6. GEMFIBROZIL [Concomitant]
  7. METOPROLOL TARTRATE [Concomitant]
  8. GLYCERYL TRINITRATE [Concomitant]
  9. RANITIDINE HYDROCHLORIDE [Concomitant]

REACTIONS (3)
  - ANGIOEDEMA [None]
  - PENILE OEDEMA [None]
  - PENIS DISORDER [None]
